FAERS Safety Report 8611336-2 (Version None)
Quarter: 2012Q3

REPORT INFORMATION
  Report Type: 
  Country: None (occurrence: None)
  Receive Date: 20120822
  Receipt Date: 20120816
  Transmission Date: 20120928
  Serious: Yes (Other)
  Sender: FDA-Public Use
  Company Number: US-PFIZER INC-2012194657

PATIENT
  Sex: Female

DRUGS (2)
  1. IBUPROFEN [Suspect]
     Dosage: UNK
  2. MOTRIN [Suspect]
     Dosage: UNK

REACTIONS (4)
  - VOMITING [None]
  - MALAISE [None]
  - ABDOMINAL DISCOMFORT [None]
  - RASH [None]
